FAERS Safety Report 20957134 (Version 1)
Quarter: 2022Q2

REPORT INFORMATION
  Report Type: Report from Study
  Country: MX (occurrence: MX)
  Receive Date: 20220614
  Receipt Date: 20220614
  Transmission Date: 20220721
  Serious: Yes (Other)
  Sender: FDA-Public Use
  Company Number: MX-NOVARTISPH-NVSC2022MX114303

PATIENT
  Sex: Male
  Weight: 62 kg

DRUGS (1)
  1. HYDROCHLOROTHIAZIDE\VALSARTAN [Suspect]
     Active Substance: HYDROCHLOROTHIAZIDE\VALSARTAN
     Indication: Hypertension
     Dosage: 1 DOSAGE FORM, Q24H (IN MORNING)
     Route: 048
     Dates: start: 2005, end: 202103

REACTIONS (9)
  - Diabetes mellitus [Unknown]
  - Blood glucose increased [Recovered/Resolved]
  - Eating disorder [Unknown]
  - Depression [Unknown]
  - Weight decreased [Recovered/Resolved]
  - Prostatic disorder [Recovered/Resolved]
  - Cystitis noninfective [Recovered/Resolved]
  - Hepatic steatosis [Recovered/Resolved]
  - Product availability issue [Unknown]

NARRATIVE: CASE EVENT DATE: 20060101
